FAERS Safety Report 7304071-4 (Version None)
Quarter: 2011Q1

REPORT INFORMATION
  Report Type: 
  Country: None (occurrence: None)
  Receive Date: 20110221
  Receipt Date: 20110210
  Transmission Date: 20110831
  Serious: Yes (Other)
  Sender: FDA-Public Use
  Company Number: PHHY2011JP06930

PATIENT
  Age: 82 Year
  Sex: Female

DRUGS (2)
  1. METHOTREXATE [Concomitant]
  2. NEORAL [Suspect]
     Indication: MUSCULOSKELETAL PAIN
     Dosage: 75 MG, UNK
     Route: 048

REACTIONS (1)
  - MELAENA [None]
